FAERS Safety Report 8409491-2 (Version None)
Quarter: 2012Q2

REPORT INFORMATION
  Report Type: 
  Country: None (occurrence: None)
  Receive Date: 20120531
  Receipt Date: 20120531
  Transmission Date: 20120825
  Serious: Yes (Other)
  Sender: FDA-Public Use
  Company Number: None

PATIENT
  Sex: Male
  Weight: 99.7913 kg

DRUGS (2)
  1. CIPRODEX [Suspect]
     Indication: EAR INFECTION
     Dosage: 3 DROPS 3 TIMES A DAY OTIC
     Route: 001
     Dates: start: 20110830
  2. CIPRODEX [Suspect]
     Indication: EAR INFECTION
     Dosage: 3 DROPS 3 TIMES A DAY OTIC
     Route: 001
     Dates: start: 20110823

REACTIONS (2)
  - TYMPANIC MEMBRANE DISORDER [None]
  - TYMPANIC MEMBRANE PERFORATION [None]
